FAERS Safety Report 5295516-2 (Version None)
Quarter: 2007Q2

REPORT INFORMATION
  Report Type: 
  Country: None (occurrence: None)
  Receive Date: 20070406
  Receipt Date: 20070322
  Transmission Date: 20071010
  Serious: Yes (Hospitalization)
  Sender: FDA-Public Use
  Company Number: DSA_29559_2007

PATIENT
  Age: 60 Year
  Sex: Female

DRUGS (5)
  1. TILDIEM [Suspect]
     Dosage: 60 MG QD PO
     Route: 048
     Dates: start: 20061204, end: 20070108
  2. CLAVENTIN [Suspect]
     Indication: LUNG ABSCESS
     Dosage: 1000 MG TID IV
     Route: 042
     Dates: start: 20061218, end: 20061231
  3. FLAGYL /00012501/ [Concomitant]
  4. ROCEPHIN [Concomitant]
  5. NOVOMIX /01475801/ [Concomitant]

REACTIONS (8)
  - CYTOMEGALOVIRUS INFECTION [None]
  - EPSTEIN-BARR VIRUS INFECTION [None]
  - FACE OEDEMA [None]
  - HERPES VIRUS INFECTION [None]
  - PARVOVIRUS INFECTION [None]
  - PERIVASCULAR DERMATITIS [None]
  - RASH MACULO-PAPULAR [None]
  - SKIN EXFOLIATION [None]
